FAERS Safety Report 25383889 (Version 1)
Quarter: 2025Q2

REPORT INFORMATION
  Report Type: Report from Study
  Country: US (occurrence: US)
  Receive Date: 20250602
  Receipt Date: 20250602
  Transmission Date: 20250716
  Serious: Yes (Hospitalization)
  Sender: ABBVIE
  Company Number: US-ABBVIE-6305504

PATIENT
  Age: 38 Year
  Sex: Male

DRUGS (1)
  1. SKYRIZI [Suspect]
     Active Substance: RISANKIZUMAB-RZAA
     Indication: Psoriasis
     Route: 058
     Dates: start: 20250505

REACTIONS (4)
  - Cystitis [Recovering/Resolving]
  - Pancreatitis [Unknown]
  - Drug hypersensitivity [Recovering/Resolving]
  - Pancreas infection [Recovering/Resolving]

NARRATIVE: CASE EVENT DATE: 20250501
